FAERS Safety Report 5314902-5 (Version None)
Quarter: 2007Q2

REPORT INFORMATION
  Report Type: 
  Country: None (occurrence: None)
  Receive Date: 20070426
  Receipt Date: 20070417
  Transmission Date: 20071010
  Serious: Yes (Hospitalization, Disabling)
  Sender: FDA-Public Use
  Company Number: 232354K07USA

PATIENT
  Age: 64 Year
  Sex: Female
  Weight: 68.0396 kg

DRUGS (13)
  1. REBIF [Suspect]
     Indication: MULTIPLE SCLEROSIS
     Dosage: 44 MCG, 3 IN 1 WEEKS, SUBCUTANEOUS
     Route: 058
     Dates: start: 20020926
  2. SYNTHROID [Concomitant]
  3. BACLOFEN [Concomitant]
  4. LORAZEPAM [Concomitant]
  5. NEURONTIN [Concomitant]
  6. POTASSIUM CHLORIDE [Concomitant]
  7. MAXZIDE [Concomitant]
  8. ZOLOFT [Concomitant]
  9. PROVIGIL [Concomitant]
  10. BONIVA (IBANDRONATE SODIUM) [Concomitant]
  11. OXYCODONE HCL [Concomitant]
  12. OXYCODONE EXTENDED RELEASE (OXYCODONE) [Concomitant]
  13. NEXIUM [Concomitant]

REACTIONS (6)
  - ARTHROPATHY [None]
  - ILL-DEFINED DISORDER [None]
  - PNEUMONIA [None]
  - POSTOPERATIVE WOUND INFECTION [None]
  - STAPHYLOCOCCAL INFECTION [None]
  - URINARY TRACT INFECTION [None]
